FAERS Safety Report 10566417 (Version 2)
Quarter: 2014Q4

REPORT INFORMATION
  Report Type: Not Available
  Country: US (occurrence: US)
  Receive Date: 20141105
  Receipt Date: 20141105
  Transmission Date: 20150529
  Serious: No
  Sender: FDA-Public Use
  Company Number: US-CELGENE-163-21880-10081205

PATIENT
  Age: 41 Year
  Sex: Female
  Weight: 68 kg

DRUGS (1)
  1. REVLIMID [Suspect]
     Active Substance: LENALIDOMIDE
     Indication: SYSTEMIC LUPUS ERYTHEMATOSUS
     Dosage: 5 MILLIGRAM
     Route: 048
     Dates: start: 20100302

REACTIONS (5)
  - Rash [Unknown]
  - Gastrointestinal infection [Unknown]
  - Diarrhoea [Unknown]
  - Gastrointestinal disorder [Unknown]
  - Drug dose omission [Unknown]

NARRATIVE: CASE EVENT DATE: 201006
